FAERS Safety Report 9546799 (Version 5)
Quarter: 2015Q2

REPORT INFORMATION
  Report Type: Report from Study
  Country: GB (occurrence: GB)
  Receive Date: 20130924
  Receipt Date: 20150509
  Transmission Date: 20150821
  Serious: Yes (Other)
  Sender: FDA-Public Use
  Company Number: GB-ROCHE-1276488

PATIENT
  Age: 67 Year
  Sex: Male
  Weight: 106.1 kg

DRUGS (3)
  1. GABAPENTIN. [Concomitant]
     Active Substance: GABAPENTIN
  2. VEMURAFENIB [Suspect]
     Active Substance: VEMURAFENIB
     Indication: METASTATIC MALIGNANT MELANOMA
     Dosage: DATE OF LAST DOSE PRIOR TO SAE:  25/OCT/2012
     Route: 048
     Dates: start: 20120119, end: 20121025
  3. IPILIMUMAB [Concomitant]
     Active Substance: IPILIMUMAB
     Route: 065
     Dates: end: 201301

REACTIONS (1)
  - Adenocarcinoma of colon [Recovered/Resolved]

NARRATIVE: CASE EVENT DATE: 20130718
